FAERS Safety Report 9642952 (Version 1)
Quarter: 2013Q4

REPORT INFORMATION
  Report Type: Report from Study
  Country: PK (occurrence: PK)
  Receive Date: 20131024
  Receipt Date: 20131024
  Transmission Date: 20140711
  Serious: Yes (Death)
  Sender: FDA-Public Use
  Company Number: PHHY2013PK119704

PATIENT
  Age: 85 Year
  Sex: Female

DRUGS (2)
  1. ACLASTA [Suspect]
     Indication: OSTEOPOROSIS
     Dosage: ONCE A YEAR
     Route: 042
     Dates: start: 20121102
  2. CALCIUM [Concomitant]
     Indication: OSTEOPOROSIS
     Dosage: UKN, QD
     Route: 048
     Dates: start: 20121025

REACTIONS (1)
  - Asthma [Fatal]
